FAERS Safety Report 14634961 (Version 1)
Quarter: 2018Q1

REPORT INFORMATION
  Report Type: Spontaneous
  Country: US (occurrence: US)
  Receive Date: 20180313
  Receipt Date: 20180313
  Transmission Date: 20180509
  Serious: Yes (Death)
  Sender: FDA-Public Use
  Company Number: None

PATIENT
  Age: 76 Year
  Sex: Male

DRUGS (2)
  1. ENBREL [Suspect]
     Active Substance: ETANERCEPT
     Indication: SARCOMA
     Route: 058
     Dates: start: 20180126
  2. METHOTREXATE 50MG/2ML [Suspect]
     Active Substance: METHOTREXATE

REACTIONS (1)
  - Death [None]
